FAERS Safety Report 11273108 (Version 2)
Quarter: 2015Q3

REPORT INFORMATION
  Report Type: Spontaneous
  Country: US (occurrence: US)
  Receive Date: 20150715
  Receipt Date: 20150929
  Transmission Date: 20151125
  Serious: No
  Sender: FDA-Public Use
  Company Number: US-PFIZER INC-2015231937

PATIENT
  Age: 56 Year
  Sex: Female

DRUGS (2)
  1. SUTENT [Suspect]
     Active Substance: SUNITINIB MALATE
     Dosage: UNK
  2. SUTENT [Suspect]
     Active Substance: SUNITINIB MALATE
     Indication: PANCREATIC CARCINOMA
     Dosage: 37.5 MG,ONCE A DAY, CYCLIC ( 2 WEEKS ON AND 1 WEEK OFF)
     Route: 048

REACTIONS (2)
  - Fatigue [Unknown]
  - Blister [Unknown]

NARRATIVE: CASE EVENT DATE: 201505
